FAERS Safety Report 14848892 (Version 2)
Quarter: 2018Q2

REPORT INFORMATION
  Report Type: Spontaneous
  Country: CZ (occurrence: CZ)
  Receive Date: 20180504
  Receipt Date: 20180504
  Transmission Date: 20180711
  Serious: Yes (Other)
  Sender: FDA-Public Use
  Company Number: CZ-BAUSCH-BL-2018-012991

PATIENT
  Age: 46 Year
  Sex: Male
  Weight: 50 kg

DRUGS (3)
  1. DORZOLAMIDE [Suspect]
     Active Substance: DORZOLAMIDE
     Indication: GLAUCOMA
     Dosage: ONE DROP IN THE LEFT EYE, TWICE DAILY
     Route: 047
  2. INSULIN [Concomitant]
     Active Substance: INSULIN NOS
     Indication: TYPE 1 DIABETES MELLITUS
  3. BRIMONIDINE [Concomitant]
     Active Substance: BRIMONIDINE TARTRATE
     Indication: GLAUCOMA
     Dosage: ONE DROP IN THE LEFT EYE, TWICE DAILY
     Route: 047

REACTIONS (2)
  - Normocytic anaemia [Recovered/Resolved]
  - Metabolic acidosis [Recovered/Resolved]
